FAERS Safety Report 12678216 (Version 2)
Quarter: 2016Q3

REPORT INFORMATION
  Report Type: Report from Study
  Country: CN (occurrence: CN)
  Receive Date: 20160823
  Receipt Date: 20160914
  Transmission Date: 20161109
  Serious: Yes (Hospitalization)
  Sender: FDA-Public Use
  Company Number: PHHY2016CN113942

PATIENT
  Age: 15 Year
  Sex: Male
  Weight: 34.5 kg

DRUGS (6)
  1. EXJADE [Suspect]
     Active Substance: DEFERASIROX
     Indication: THALASSAEMIA BETA
     Dosage: 8 DF, QD (32.25MG/KG/DAILY)
     Route: 048
     Dates: start: 20140101
  2. EXJADE [Suspect]
     Active Substance: DEFERASIROX
     Dosage: 28.98 MG/KG, QD
     Route: 048
     Dates: start: 20140104
  3. GLUCOPHAGE [Concomitant]
     Active Substance: METFORMIN HYDROCHLORIDE
     Indication: DIABETES MELLITUS
     Dosage: 0.5 G, TID
     Route: 048
  4. NOVORAPID [Concomitant]
     Active Substance: INSULIN ASPART
     Indication: DIABETES MELLITUS
     Dosage: 9U/7U/9U
     Route: 058
  5. ESSENTIALE [Concomitant]
     Indication: LIVER INJURY
     Dosage: 228 MG, TID
     Route: 048
  6. DIPYRIDAMOLE. [Concomitant]
     Active Substance: DIPYRIDAMOLE
     Indication: PLATELET COUNT INCREASED
     Dosage: 25 MG, QD
     Route: 048

REACTIONS (8)
  - Cyanosis [Unknown]
  - Back pain [Unknown]
  - Haemoglobin decreased [Unknown]
  - Serum ferritin increased [Unknown]
  - Pallor [Unknown]
  - Renal injury [Not Recovered/Not Resolved]
  - White blood cell count increased [Unknown]
  - Platelet count increased [Unknown]

NARRATIVE: CASE EVENT DATE: 20160810
